FAERS Safety Report 15805519 (Version 2)
Quarter: 2019Q1

REPORT INFORMATION
  Report Type: Report from Study
  Country: None (occurrence: CA)
  Receive Date: 20190110
  Receipt Date: 20190111
  Transmission Date: 20190417
  Serious: Yes (Other)
  Sender: FDA-Public Use
  Company Number: CA-ABBVIE-18K-028-2559124-00

PATIENT
  Sex: Male

DRUGS (2)
  1. HUMIRA [Suspect]
     Active Substance: ADALIMUMAB
     Indication: CROHN^S DISEASE
     Route: 058
     Dates: start: 20171222, end: 20181102
  2. HUMIRA [Suspect]
     Active Substance: ADALIMUMAB
     Route: 058
     Dates: start: 201811

REACTIONS (4)
  - Rectal fissure [Not Recovered/Not Resolved]
  - Malaise [Not Recovered/Not Resolved]
  - Fistula [Recovering/Resolving]
  - Rectal discharge [Not Recovered/Not Resolved]

NARRATIVE: CASE EVENT DATE: 2018
